FAERS Safety Report 16886249 (Version 1)
Quarter: 2019Q4

REPORT INFORMATION
  Report Type: Spontaneous
  Country: US (occurrence: US)
  Receive Date: 20191004
  Receipt Date: 20191004
  Transmission Date: 20200122
  Serious: Yes (Other)
  Sender: FDA-Public Use
  Company Number: None

PATIENT
  Age: 65 Year
  Sex: Female
  Weight: 65.66 kg

DRUGS (13)
  1. LORAZEPAM. [Concomitant]
     Active Substance: LORAZEPAM
  2. LUTEIN [Concomitant]
     Active Substance: LUTEIN
  3. NERLYNX [Suspect]
     Active Substance: NERATINIB
     Indication: BREAST CANCER
     Route: 048
     Dates: start: 20190906, end: 20191004
  4. LEVIRACETAM [Concomitant]
  5. IMODIUM A-D [Concomitant]
     Active Substance: LOPERAMIDE HYDROCHLORIDE
  6. PROCHLORPERAZINE. [Concomitant]
     Active Substance: PROCHLORPERAZINE
  7. VITAMIN E BLEND [Concomitant]
  8. CAPECITABINE. [Suspect]
     Active Substance: CAPECITABINE
     Indication: BREAST CANCER
     Route: 048
     Dates: start: 20190906, end: 20191004
  9. CALCIUM CARBONATE-VITAMIN D [Concomitant]
     Active Substance: CALCIUM CARBONATE\VITAMIN D
  10. DEXAMETHASONE. [Concomitant]
     Active Substance: DEXAMETHASONE
  11. OMEGA 3 [Concomitant]
     Active Substance: OMEGA-3 FATTY ACIDS
  12. CAPECITABINE. [Concomitant]
     Active Substance: CAPECITABINE
  13. PAMTOPRAZOLE [Concomitant]

REACTIONS (1)
  - Tumour flare [None]

NARRATIVE: CASE EVENT DATE: 20191004
